FAERS Safety Report 7803011-9 (Version None)
Quarter: 2011Q4

REPORT INFORMATION
  Report Type: 
  Country: None (occurrence: None)
  Receive Date: 20111007
  Receipt Date: 20110927
  Transmission Date: 20120403
  Serious: Yes (Hospitalization, Other)
  Sender: FDA-Public Use
  Company Number: US-BAYER-2011-003068

PATIENT
  Age: 26 Year
  Sex: Female
  Weight: 84 kg

DRUGS (9)
  1. CONCERTA [Concomitant]
     Indication: ANXIETY
     Dosage: UNK
     Dates: start: 20040101, end: 20110101
  2. IBUPROFEN (ADVIL) [Concomitant]
     Indication: HEADACHE
     Dosage: UNK UNK, PRN
  3. UNASYN [Concomitant]
     Dosage: 3 G, UNK
  4. PROZAC [Concomitant]
     Indication: DEPRESSION
     Dosage: UNK
     Dates: start: 20030101, end: 20110101
  5. PROZAC [Concomitant]
     Indication: ATTENTION DEFICIT/HYPERACTIVITY DISORDER
  6. FLAGYL [Concomitant]
     Dosage: 500 MG, UNK
     Route: 042
  7. YASMIN [Suspect]
     Indication: CONTRACEPTION
     Dosage: UNK
     Route: 048
     Dates: start: 20020101, end: 20080701
  8. VALTREX [Concomitant]
     Dosage: 1 G, UNK
     Dates: start: 20080327
  9. ACIPHEX [Concomitant]
     Indication: GASTROOESOPHAGEAL REFLUX DISEASE

REACTIONS (8)
  - GALLBLADDER DISORDER [None]
  - CHOLECYSTITIS ACUTE [None]
  - NAUSEA [None]
  - VOMITING [None]
  - BILE DUCT STONE [None]
  - BILE DUCT OBSTRUCTION [None]
  - PAIN [None]
  - ABDOMINAL PAIN [None]
